FAERS Safety Report 9600397 (Version 1)
Quarter: 2013Q4

REPORT INFORMATION
  Report Type: Spontaneous
  Country: US (occurrence: US)
  Receive Date: 20131004
  Receipt Date: 20131004
  Transmission Date: 20140711
  Serious: No
  Sender: FDA-Public Use
  Company Number: US-AMGEN-USASP2013035153

PATIENT
  Age: 61 Year
  Sex: Female
  Weight: 58.05 kg

DRUGS (9)
  1. ENBREL [Suspect]
     Indication: PRODUCT USED FOR UNKNOWN INDICATION
     Dosage: 50 MG, QWK
     Route: 058
  2. DEXEDRINE [Concomitant]
     Dosage: 5 MG, UNK
  3. ONDANSETRON [Concomitant]
     Dosage: 4 MG, UNK
  4. OXYCODONE [Concomitant]
     Dosage: 10 MG, UNK
  5. VIT D [Concomitant]
     Dosage: 400 UNIT, UNK
  6. FOLIC ACID [Concomitant]
     Dosage: UNK
  7. PROCHLORPERAZ [Concomitant]
     Dosage: 2.5 MG, SUSPENSION
  8. METHOTREXATE [Concomitant]
     Dosage: 1 G, UNK
  9. SECTRAL [Concomitant]
     Dosage: 200 MG, UNK

REACTIONS (5)
  - Drug ineffective [Unknown]
  - Injection site erythema [Recovered/Resolved]
  - Injection site induration [Recovered/Resolved]
  - Injection site rash [Recovered/Resolved]
  - Injection site pain [Unknown]
